FAERS Safety Report 8433695-6 (Version None)
Quarter: 2012Q2

REPORT INFORMATION
  Report Type: 
  Country: None (occurrence: None)
  Receive Date: 20120613
  Receipt Date: 20120530
  Transmission Date: 20120825
  Serious: Yes (Other)
  Sender: FDA-Public Use
  Company Number: CHPA2012US011622

PATIENT
  Sex: Male

DRUGS (1)
  1. PHENYLEPHRINE HYDROCHLORIDE [Suspect]
     Indication: HYPERSENSITIVITY
     Dosage: UNK, QD
     Route: 045

REACTIONS (2)
  - NASAL CONGESTION [None]
  - DRUG DEPENDENCE [None]
